FAERS Safety Report 25003639 (Version 1)
Quarter: 2025Q1

REPORT INFORMATION
  Report Type: Report from Study
  Country: US (occurrence: US)
  Receive Date: 20250224
  Receipt Date: 20250224
  Transmission Date: 20250409
  Serious: Yes (Disabling, Other)
  Sender: UCB
  Company Number: US-UCBSA-2025010049

PATIENT
  Sex: Male

DRUGS (1)
  1. LACOSAMIDE [Suspect]
     Active Substance: LACOSAMIDE
     Indication: Seizure

REACTIONS (2)
  - Deafness [Not Recovered/Not Resolved]
  - Overdose [Unknown]
